FAERS Safety Report 7532970-7 (Version None)
Quarter: 2011Q2

REPORT INFORMATION
  Report Type: 
  Country: None (occurrence: None)
  Receive Date: 20110601
  Receipt Date: 20110523
  Transmission Date: 20111010
  Serious: Yes (Hospitalization, Disabling)
  Sender: FDA-Public Use
  Company Number: 2011SP023675

PATIENT
  Age: 42 Year
  Sex: Female

DRUGS (1)
  1. DESOGESTREL AND ETHINYL ESTRADIOL [Suspect]
     Indication: CONTRACEPTION

REACTIONS (7)
  - PLEURISY [None]
  - GASTROINTESTINAL INFECTION [None]
  - PYREXIA [None]
  - PNEUMONIA [None]
  - VOMITING [None]
  - DIARRHOEA [None]
  - PULMONARY THROMBOSIS [None]
